FAERS Safety Report 4715123-7 (Version None)
Quarter: 2005Q3

REPORT INFORMATION
  Report Type: 
  Country: None (occurrence: None)
  Receive Date: 20050715
  Receipt Date: 20030923
  Transmission Date: 20060218
  Serious: Yes (Other)
  Sender: FDA-Public Use
  Company Number: US-GLAXOSMITHKLINE-A0428598A

PATIENT
  Sex: Male

DRUGS (1)
  1. PAXIL [Suspect]
     Indication: DEPRESSION
     Dosage: 20MG PER DAY
     Route: 048
     Dates: start: 19980101

REACTIONS (24)
  - AGITATION [None]
  - ANXIETY [None]
  - ASTHENIA [None]
  - DEPRESSED MOOD [None]
  - DEPRESSION [None]
  - DISTURBANCE IN ATTENTION [None]
  - DIZZINESS [None]
  - DRUG DOSE OMISSION [None]
  - DRUG WITHDRAWAL SYNDROME [None]
  - EYE DISORDER [None]
  - FATIGUE [None]
  - FEELING ABNORMAL [None]
  - FEELING OF DESPAIR [None]
  - HEADACHE [None]
  - IRRITABILITY [None]
  - MALAISE [None]
  - MUSCLE TIGHTNESS [None]
  - MUSCULOSKELETAL STIFFNESS [None]
  - PARAESTHESIA [None]
  - PARANOIA [None]
  - REFUSAL OF TREATMENT BY PATIENT [None]
  - SUICIDAL IDEATION [None]
  - VERTIGO [None]
  - VISION BLURRED [None]
